FAERS Safety Report 6451243-7 (Version None)
Quarter: 2009Q4

REPORT INFORMATION
  Report Type: 
  Country: None (occurrence: None)
  Receive Date: 20091123
  Receipt Date: 20091112
  Transmission Date: 20100525
  Serious: Yes (Other)
  Sender: FDA-Public Use
  Company Number: BR-PFIZER INC-2009283753

PATIENT
  Sex: Female

DRUGS (1)
  1. EPELIN [Suspect]
     Dosage: 100 MG, UNK
     Route: 048

REACTIONS (2)
  - ABASIA [None]
  - COMMUNICATION DISORDER [None]
